FAERS Safety Report 8448679-1 (Version None)
Quarter: 2012Q2

REPORT INFORMATION
  Report Type: 
  Country: None (occurrence: None)
  Receive Date: 20120619
  Receipt Date: 20120611
  Transmission Date: 20120825
  Serious: Yes (Hospitalization, Other)
  Sender: FDA-Public Use
  Company Number: FR-MERCK-1203FRA00086

PATIENT
  Age: 74 Year
  Sex: Female
  Weight: 88 kg

DRUGS (12)
  1. METFORMIN HYDROCHLORIDE [Suspect]
     Indication: TYPE 2 DIABETES MELLITUS
     Route: 048
     Dates: start: 20091009, end: 20101012
  2. ACARBOSE [Suspect]
     Route: 048
     Dates: start: 20111110
  3. ASPIRIN AND DIPYRIDAMOLE [Concomitant]
     Route: 065
  4. ACARBOSE [Suspect]
     Indication: TYPE 2 DIABETES MELLITUS
     Route: 048
     Dates: start: 20110810, end: 20111109
  5. VENLAFAXINE HYDROCHLORIDE [Concomitant]
     Route: 065
  6. ALPRAZOLAM [Concomitant]
     Route: 065
  7. JANUVIA [Suspect]
     Indication: TYPE 2 DIABETES MELLITUS
     Route: 048
     Dates: start: 20091009, end: 20101012
  8. METFORMIN HYDROCHLORIDE [Suspect]
     Route: 048
     Dates: start: 20101012
  9. SPIRONOLACTONE [Concomitant]
     Route: 065
  10. LORMETAZEPAM [Concomitant]
     Route: 065
  11. LIRAGLUTIDE [Suspect]
     Indication: TYPE 2 DIABETES MELLITUS
     Route: 065
     Dates: start: 20101012, end: 20110113
  12. LIRAGLUTIDE [Suspect]
     Route: 065
     Dates: start: 20110114

REACTIONS (1)
  - PLEURAL MESOTHELIOMA [None]
